FAERS Safety Report 12143951 (Version 1)
Quarter: 2016Q1

REPORT INFORMATION
  Report Type: Spontaneous
  Country: US (occurrence: US)
  Receive Date: 20160304
  Receipt Date: 20160304
  Transmission Date: 20160526
  Serious: No
  Sender: FDA-Public Use
  Company Number: US-JNJFOC-20160206568

PATIENT
  Sex: Female
  Weight: 48.99 kg

DRUGS (2)
  1. WOMENS ROGAINE [Suspect]
     Active Substance: MINOXIDIL
     Indication: PROPHYLAXIS
     Dosage: USED IT FOR 7 OR 8 YEARS SINCE 2007 OR 2008
     Route: 061
  2. WOMENS ROGAINE [Suspect]
     Active Substance: MINOXIDIL
     Route: 061

REACTIONS (4)
  - Alopecia [Recovering/Resolving]
  - Drug ineffective for unapproved indication [Unknown]
  - Off label use [Recovering/Resolving]
  - Product use issue [Recovering/Resolving]
